FAERS Safety Report 17763480 (Version 1)
Quarter: 2020Q2

REPORT INFORMATION
  Report Type: Spontaneous
  Country: GB (occurrence: GB)
  Receive Date: 20200509
  Receipt Date: 20200509
  Transmission Date: 20200714
  Serious: Yes (Other)
  Sender: FDA-Public Use
  Company Number: GB-TEVA-2020-GB-1232120

PATIENT
  Age: 49 Year
  Sex: Male
  Weight: 68 kg

DRUGS (7)
  1. METHADONE [Concomitant]
     Active Substance: METHADONE HYDROCHLORIDE
     Dosage: 40 ML, DISPENSE 280ML WEEKLY
     Dates: start: 20200415
  2. ARIPIPRAZOLE. [Concomitant]
     Active Substance: ARIPIPRAZOLE
     Dosage: 1 DOSAGE FORM
     Dates: start: 20191202
  3. RISPERIDONE. [Suspect]
     Active Substance: RISPERIDONE
     Dosage: 6 MG
     Dates: start: 20200324
  4. MIRTAZAPINE. [Concomitant]
     Active Substance: MIRTAZAPINE
     Dosage: 1 DOSAGE FORMS DAILY; AT NIGHT
     Dates: start: 20200324
  5. ZOPICLONE [Concomitant]
     Active Substance: ZOPICLONE
     Dosage: 1 DOSAGE FORM, AT NIGHT. FOR SHORT TERM USE ONLY.
     Dates: start: 20200415
  6. LORAZEPAM. [Concomitant]
     Active Substance: LORAZEPAM
     Dosage: UP TO TWICE A DAY. DO NOT EXCEED STATED DOSE.
     Dates: start: 20200324
  7. LEVOTHYROXINE. [Concomitant]
     Active Substance: LEVOTHYROXINE
     Dosage: 1 DOSAGE FORM
     Dates: start: 20190617

REACTIONS (2)
  - Swelling face [Recovered/Resolved]
  - Lip swelling [Recovered/Resolved]

NARRATIVE: CASE EVENT DATE: 20200420
